FAERS Safety Report 16736348 (Version 3)
Quarter: 2019Q4

REPORT INFORMATION
  Report Type: Spontaneous
  Country: US (occurrence: US)
  Receive Date: 20190823
  Receipt Date: 20191104
  Transmission Date: 20200122
  Serious: No
  Sender: FDA-Public Use
  Company Number: US-SA-2019SA234248

PATIENT
  Age: 70 Year
  Sex: Female

DRUGS (1)
  1. ALIROCUMAB [Suspect]
     Active Substance: ALIROCUMAB
     Dosage: 75 MG/ML, QOW
     Route: 058
     Dates: start: 20190404

REACTIONS (2)
  - Condition aggravated [Not Recovered/Not Resolved]
  - Red blood cell abnormality [Unknown]

NARRATIVE: CASE EVENT DATE: 201907
